FAERS Safety Report 7099892-X (Version None)
Quarter: 2010Q4

REPORT INFORMATION
  Report Type: 
  Country: None (occurrence: None)
  Receive Date: 20101112
  Receipt Date: 20101108
  Transmission Date: 20110411
  Serious: Yes (Other)
  Sender: FDA-Public Use
  Company Number: US-ROXANE LABORATORIES, INC.-2010-RO-01473RO

PATIENT
  Age: 66 Year
  Sex: Female

DRUGS (2)
  1. IMIPRAMINE PAMOATE [Suspect]
     Indication: DEPRESSION
  2. HORMONE REPLACEMENT THERAPY [Suspect]
     Indication: MENOPAUSAL SYMPTOMS

REACTIONS (2)
  - SKIN HYPERPIGMENTATION [None]
  - SOCIAL AVOIDANT BEHAVIOUR [None]
